FAERS Safety Report 20589424 (Version 6)
Quarter: 2022Q2

REPORT INFORMATION
  Report Type: Spontaneous
  Country: US (occurrence: US)
  Receive Date: 20220314
  Receipt Date: 20220527
  Transmission Date: 20220721
  Serious: Yes (Hospitalization)
  Sender: FDA-Public Use
  Company Number: US-KARYOPHARM-2022KPT000265

PATIENT

DRUGS (4)
  1. XPOVIO [Suspect]
     Active Substance: SELINEXOR
     Indication: Plasma cell myeloma
     Dosage: 80 MG, WEEKLY
     Route: 048
     Dates: start: 20220225, end: 2022
  2. XPOVIO [Suspect]
     Active Substance: SELINEXOR
     Dosage: 80 MG, WEEKLY
     Route: 048
     Dates: start: 2022
  3. CARFILZOMIB [Concomitant]
     Active Substance: CARFILZOMIB
  4. ZOMETA [Concomitant]
     Active Substance: ZOLEDRONIC ACID
     Indication: Bone loss
     Dosage: UNK, MONTHLY

REACTIONS (15)
  - Pneumonia [Not Recovered/Not Resolved]
  - Blood sodium decreased [Unknown]
  - Pallor [Recovering/Resolving]
  - Depressed mood [Not Recovered/Not Resolved]
  - Laboratory test abnormal [Unknown]
  - Anuria [Recovering/Resolving]
  - Diarrhoea [Not Recovered/Not Resolved]
  - Nausea [Not Recovered/Not Resolved]
  - Fatigue [Unknown]
  - Asthenia [Unknown]
  - Vision blurred [Unknown]
  - Decreased appetite [Unknown]
  - Dehydration [Unknown]
  - Constipation [Unknown]
  - Product dose omission issue [Unknown]

NARRATIVE: CASE EVENT DATE: 20220101
